FAERS Safety Report 8507263 (Version 4)
Quarter: 2012Q4

REPORT INFORMATION
  Report Type: 
  Country: US (occurrence: US)
  Receive Date: 20120412
  Receipt Date: 20121004
  Transmission Date: 20130627
  Serious: Yes (Hospitalization, Other)
  Sender: FDA-Public Use
  Company Number: US-ASTRAZENECA-2012SE11776

PATIENT
  Age: 71 Year
  Sex: Female
  Weight: 77.1 kg

DRUGS (2)
  1. NEXIUM [Suspect]
     Indication: GASTROOESOPHAGEAL REFLUX DISEASE
     Route: 048
  2. NEXIUM [Suspect]
     Indication: GASTROINTESTINAL HAEMORRHAGE
     Route: 048

REACTIONS (8)
  - Gastric haemorrhage [Not Recovered/Not Resolved]
  - Aspiration [Not Recovered/Not Resolved]
  - Pneumonia aspiration [Not Recovered/Not Resolved]
  - Barrett^s oesophagus [Unknown]
  - Gastrooesophageal reflux disease [Unknown]
  - Hiatus hernia [Unknown]
  - Condition aggravated [Unknown]
  - Drug dose omission [Unknown]
